FAERS Safety Report 9221638 (Version 1)
Quarter: 2013Q1

REPORT INFORMATION
  Report Type: Spontaneous
  Country: US (occurrence: None)
  Receive Date: 20120831
  Receipt Date: 20120831
  Transmission Date: 20140127
  Serious: Yes (Other)
  Sender: FDA-Public Use
  Company Number: 1000030094

PATIENT
  Age: 56 Year
  Sex: Female
  Weight: 94 kg

DRUGS (11)
  1. DALIRESP [Suspect]
     Route: 048
     Dates: start: 201203, end: 20120423
  2. ISOSORBIDE (ISOORBIDE) (ISOSORBIDE) [Concomitant]
  3. PLAVIX (CLOPIDOGREL BISULFATE) (CLOPIDROGREL BISULFATE) [Concomitant]
  4. LANTUS ( INSULIN GLARGINE) (INSULIN GLARGINE) [Concomitant]
  5. GLYCOPYRROLATE (GLYCOPYRROLATE) (GLYCOPYRROLATE) [Concomitant]
  6. KLONPIN (CLONAZEPAM) (CLONAZEPAM) [Concomitant]
  7. GABAPENTIN (GABAPENTIN) (GABAPENTIN) [Concomitant]
  8. ASPIRIN (ACETYLSALICYCLIC ACID) (ACETYLSALICYCLIC ACID) [Concomitant]
  9. LIPDERM (LIDOCAINE) (LIDOCAINE) [Concomitant]
  10. VITAMIN B-12 (CYANOCOBALAMIN) (INJECTION) (CYANOCOBALAMIN) [Concomitant]
  11. NITROGLYCERIN (NITROGLYCERIN) (NITROGLYCERIN) [Concomitant]

REACTIONS (5)
  - Weight decreased [None]
  - Blood pressure increased [None]
  - Angina pectoris [None]
  - Anger [None]
  - Aggression [None]
